FAERS Safety Report 14967466 (Version 2)
Quarter: 2018Q4

REPORT INFORMATION
  Report Type: Spontaneous
  Country: US (occurrence: US)
  Receive Date: 20180604
  Receipt Date: 20181108
  Transmission Date: 20190204
  Serious: No
  Sender: FDA-Public Use
  Company Number: US-ASTRAZENECA-2018SE62528

PATIENT
  Sex: Male
  Weight: 99.8 kg

DRUGS (3)
  1. BYDUREON BCISE [Suspect]
     Active Substance: EXENATIDE
     Indication: TYPE 2 DIABETES MELLITUS
     Route: 058
     Dates: start: 20180430
  2. BYDUREON [Suspect]
     Active Substance: EXENATIDE
     Route: 065
  3. GLUCOPHASE [Concomitant]

REACTIONS (8)
  - Nausea [Unknown]
  - Lethargy [Unknown]
  - Adverse event [Unknown]
  - Injection site bruising [Not Recovered/Not Resolved]
  - Asthenia [Unknown]
  - Vertigo [Unknown]
  - Device malfunction [Unknown]
  - Hypophagia [Unknown]
